FAERS Safety Report 5387763-6 (Version None)
Quarter: 2007Q3

REPORT INFORMATION
  Report Type: 
  Country: None (occurrence: None)
  Receive Date: 20070716
  Receipt Date: 20070712
  Transmission Date: 20080115
  Serious: Yes (Other)
  Sender: FDA-Public Use
  Company Number: D0053964A

PATIENT
  Age: 31 Year
  Sex: Male
  Weight: 70 kg

DRUGS (1)
  1. ZOVIRAX [Suspect]
     Route: 048

REACTIONS (3)
  - AGGRESSION [None]
  - MYDRIASIS [None]
  - PYREXIA [None]
